FAERS Safety Report 26135554 (Version 1)
Quarter: 2025Q4

REPORT INFORMATION
  Report Type: Spontaneous
  Country: US (occurrence: US)
  Receive Date: 20251209
  Receipt Date: 20251209
  Transmission Date: 20260118
  Serious: Yes (Hospitalization, Other)
  Sender: GLAXOSMITHKLINE
  Company Number: US-GSK-US2025GSK157148

PATIENT
  Age: 19 Year
  Sex: Male

DRUGS (2)
  1. BUPROPION HYDROCHLORIDE [Suspect]
     Active Substance: BUPROPION HYDROCHLORIDE
     Indication: Major depression
     Dosage: 100 MG, 60 TABLETS
  2. BUPROPION HYDROCHLORIDE [Suspect]
     Active Substance: BUPROPION HYDROCHLORIDE
     Indication: Generalised anxiety disorder

REACTIONS (11)
  - Electrocardiogram abnormal [Recovering/Resolving]
  - Intentional overdose [Unknown]
  - Toxicity to various agents [Recovering/Resolving]
  - Hallucination, visual [Recovering/Resolving]
  - Apnoea [Recovering/Resolving]
  - Unresponsive to stimuli [Recovering/Resolving]
  - Nausea [Recovering/Resolving]
  - Vomiting [Recovering/Resolving]
  - Hypotension [Recovering/Resolving]
  - Tremor [Recovering/Resolving]
  - Agitation [Recovering/Resolving]
